FAERS Safety Report 4479386-8 (Version None)
Quarter: 2004Q4

REPORT INFORMATION
  Report Type: 
  Country: None (occurrence: None)
  Receive Date: 20041020
  Receipt Date: 20041005
  Transmission Date: 20050328
  Serious: Yes (Death)
  Sender: FDA-Public Use
  Company Number: 200413106JP

PATIENT
  Sex: Male

DRUGS (2)
  1. TAXOTERE [Suspect]
     Indication: TONGUE NEOPLASM
     Route: 041
     Dates: start: 20030708, end: 20030708
  2. CISPLATIN [Suspect]
     Indication: TONGUE NEOPLASM
     Route: 041
     Dates: start: 20030708, end: 20030708

REACTIONS (4)
  - ENTEROCOLITIS [None]
  - ILEUS PARALYTIC [None]
  - PNEUMONIA [None]
  - RENAL IMPAIRMENT [None]
